FAERS Safety Report 10242358 (Version 2)
Quarter: 2014Q2

REPORT INFORMATION
  Report Type: Spontaneous
  Country: US (occurrence: US)
  Receive Date: 20140617
  Receipt Date: 20140624
  Transmission Date: 20141212
  Serious: No
  Sender: FDA-Public Use
  Company Number: US-GILEAD-2014-0105478

PATIENT
  Sex: Male

DRUGS (2)
  1. LETAIRIS [Suspect]
     Indication: PRODUCT USED FOR UNKNOWN INDICATION
     Dosage: 5 MG, QD
     Route: 065
     Dates: start: 20140410
  2. VENTAVIS [Concomitant]

REACTIONS (6)
  - Dry mouth [Unknown]
  - Pyrexia [Unknown]
  - Cough [Unknown]
  - Hypotension [Unknown]
  - Headache [Unknown]
  - Sinus disorder [Unknown]
